FAERS Safety Report 26020544 (Version 1)
Quarter: 2025Q4

REPORT INFORMATION
  Report Type: Report from Study
  Country: US (occurrence: US)
  Receive Date: 20251110
  Receipt Date: 20251110
  Transmission Date: 20260117
  Serious: Yes (Death)
  Sender: MYLAN
  Company Number: US-MYLANLABS-2025M1095002

PATIENT
  Age: 17 Year

DRUGS (4)
  1. FOMEPIZOLE [Suspect]
     Active Substance: FOMEPIZOLE
     Indication: Alcohol poisoning
     Dosage: UNK
  2. FOMEPIZOLE [Suspect]
     Active Substance: FOMEPIZOLE
     Dosage: UNK
     Route: 065
  3. FOMEPIZOLE [Suspect]
     Active Substance: FOMEPIZOLE
     Dosage: UNK
     Route: 065
  4. FOMEPIZOLE [Suspect]
     Active Substance: FOMEPIZOLE
     Dosage: UNK

REACTIONS (1)
  - Drug ineffective [Fatal]
